FAERS Safety Report 5683478-5 (Version None)
Quarter: 2008Q1

REPORT INFORMATION
  Report Type: 
  Country: None (occurrence: None)
  Receive Date: 20080327
  Receipt Date: 20080318
  Transmission Date: 20080703
  Serious: No
  Sender: FDA-Public Use
  Company Number: US-GILEAD-2007-0014440

PATIENT
  Sex: Male

DRUGS (17)
  1. LETAIRIS [Suspect]
     Indication: PULMONARY HYPERTENSION
     Route: 048
     Dates: start: 20071108, end: 20071113
  2. AMBIEN [Suspect]
     Route: 048
  3. REMODULIN [Concomitant]
     Indication: PULMONARY HYPERTENSION
     Dosage: VARYING DOSAGE
     Route: 042
     Dates: start: 20050221
  4. REVATIO [Concomitant]
     Indication: PULMONARY HYPERTENSION
     Route: 048
     Dates: start: 20050818
  5. BUMEX [Concomitant]
     Indication: OEDEMA DUE TO CARDIAC DISEASE
     Route: 048
     Dates: start: 20060403
  6. ALDACTONE [Concomitant]
     Indication: OEDEMA DUE TO CARDIAC DISEASE
     Route: 048
     Dates: start: 20060109
  7. METOLAZONE [Concomitant]
     Indication: OEDEMA DUE TO CARDIAC DISEASE
     Route: 048
     Dates: start: 20060109
  8. POTASSIUM CHLORIDE [Concomitant]
     Indication: SUPPLEMENTATION THERAPY
     Dosage: 7 TABS DAILY
     Route: 048
  9. MAG-OX 400 [Concomitant]
     Indication: HYPOMAGNESAEMIA
     Dosage: 4 TABS DAILY
     Route: 048
     Dates: start: 20060507
  10. DIGOXIN [Concomitant]
     Indication: CARDIAC FAILURE
     Route: 048
     Dates: start: 20050201
  11. COUMADIN [Concomitant]
     Indication: THROMBOSIS PROPHYLAXIS
     Route: 048
     Dates: start: 20061227
  12. OMEPRAZOLE [Concomitant]
     Indication: GASTROOESOPHAGEAL REFLUX DISEASE
     Route: 048
     Dates: start: 20080301
  13. OXYGEN [Concomitant]
     Indication: HYPOXIA
     Dates: start: 20050318
  14. TRAZODONE HCL [Concomitant]
     Indication: DEPRESSION
     Route: 048
     Dates: start: 20050701
  15. TRAZODONE HCL [Concomitant]
     Indication: SLEEP DISORDER
  16. FERROUS SULFATE TAB [Concomitant]
     Indication: ANAEMIA
     Route: 048
     Dates: start: 20070820
  17. ALBUTEROL [Concomitant]
     Indication: ASTHMA
     Dosage: 1-2 PUFFS QID PRN
     Route: 045
     Dates: start: 20060908

REACTIONS (3)
  - CARDIAC FAILURE [None]
  - DYSPNOEA [None]
  - OEDEMA PERIPHERAL [None]
